FAERS Safety Report 5231784-0 (Version None)
Quarter: 2007Q1

REPORT INFORMATION
  Report Type: 
  Country: None (occurrence: None)
  Receive Date: 20070206
  Receipt Date: 20070128
  Transmission Date: 20070707
  Serious: Yes (Hospitalization)
  Sender: FDA-Public Use
  Company Number: GR-ABBOTT-07P-066-0357368-00

PATIENT
  Age: 60 Year
  Sex: Female
  Weight: 106 kg

DRUGS (5)
  1. HUMIRA 40 MG PRE-FILLED SYRINGE [Suspect]
     Indication: RHEUMATOID ARTHRITIS
     Route: 058
     Dates: start: 20070110
  2. GLUCOPHAGE [Suspect]
     Indication: DIABETES MELLITUS
     Route: 048
     Dates: start: 19950101, end: 20070119
  3. GLIMEPIRIDE [Suspect]
     Indication: DIABETES MELLITUS
     Route: 048
     Dates: start: 20060111, end: 20070119
  4. THYRORMONE [Concomitant]
     Indication: HYPOTHYROIDISM
     Route: 048
     Dates: start: 19970101, end: 20070119
  5. HYDROXYCHLOROQUINE PHOSPHATE [Concomitant]
     Indication: RHEUMATOID ARTHRITIS
     Route: 048
     Dates: start: 20060420, end: 20070119

REACTIONS (1)
  - HYPOGLYCAEMIA [None]
